FAERS Safety Report 19105354 (Version 1)
Quarter: 2021Q2

REPORT INFORMATION
  Report Type: Spontaneous
  Country: US (occurrence: US)
  Receive Date: 20210407
  Receipt Date: 20210407
  Transmission Date: 20210717
  Serious: No
  Sender: FDA-Public Use
  Company Number: US-PFIZER INC-2021194886

PATIENT
  Age: 90 Year
  Sex: Female

DRUGS (3)
  1. BENZONATATE. [Suspect]
     Active Substance: BENZONATATE
     Indication: COUGH
     Dosage: 100 MG, 3X/DAY (ONE EVERY 8 HOURS)
  2. BENZONATATE. [Suspect]
     Active Substance: BENZONATATE
     Dosage: 100 MG, 2X/DAY (ONE IN THE MORNING AND ONE AT NIGHT)
  3. TOZINAMERAN. [Concomitant]
     Active Substance: TOZINAMERAN
     Indication: COVID-19 IMMUNISATION
     Dosage: SINGLE DOSE
     Dates: start: 20210218, end: 20210218

REACTIONS (1)
  - Nausea [Unknown]

NARRATIVE: CASE EVENT DATE: 20210221
